FAERS Safety Report 13425705 (Version 2)
Quarter: 2017Q2

REPORT INFORMATION
  Report Type: Spontaneous
  Country: US (occurrence: US)
  Receive Date: 20170411
  Receipt Date: 20170508
  Transmission Date: 20170830
  Serious: No
  Sender: FDA-Public Use
  Company Number: US-JNJFOC-20170125975

PATIENT
  Age: 71 Year
  Sex: Male
  Weight: 90.72 kg

DRUGS (7)
  1. SULFADIAZINE. [Concomitant]
     Active Substance: SULFADIAZINE
     Indication: RHEUMATOID ARTHRITIS
     Route: 048
     Dates: start: 2015
  2. FENTANYL. [Suspect]
     Active Substance: FENTANYL
     Indication: PAIN
     Route: 062
     Dates: start: 201612
  3. CELECOXIB. [Concomitant]
     Active Substance: CELECOXIB
     Indication: RHEUMATOID ARTHRITIS
     Route: 048
     Dates: start: 2010
  4. VITAMIN D3 [Concomitant]
     Active Substance: CHOLECALCIFEROL
     Indication: INFLAMMATION
     Dosage: 2000 UNITS
     Route: 048
     Dates: start: 2014
  5. VITAMINA B12 [Concomitant]
     Indication: INFLAMMATION
     Route: 048
     Dates: start: 2014
  6. PREDNISONE. [Concomitant]
     Active Substance: PREDNISONE
     Indication: RHEUMATOID ARTHRITIS
     Route: 048
     Dates: start: 2015
  7. ACETAMINOPHEN AND CODEINE [Concomitant]
     Active Substance: ACETAMINOPHEN\CODEINE PHOSPHATE
     Indication: PAIN
     Dosage: EVERY 4-6 HOURS
     Route: 048
     Dates: start: 2010

REACTIONS (3)
  - Wrong technique in product usage process [Recovered/Resolved]
  - Inappropriate schedule of drug administration [Unknown]
  - Product use complaint [Unknown]

NARRATIVE: CASE EVENT DATE: 201612
